FAERS Safety Report 22610215 (Version 1)
Quarter: 2023Q2

REPORT INFORMATION
  Report Type: Spontaneous
  Country: US (occurrence: None)
  Receive Date: 20230614
  Receipt Date: 20230614
  Transmission Date: 20230722
  Serious: Yes (Disabling, Other)
  Sender: FDA-Public Use
  Company Number: None

PATIENT
  Age: 77 Year
  Sex: Male
  Weight: 56.7 kg

DRUGS (9)
  1. EFUDEX [Suspect]
     Active Substance: FLUOROURACIL
  2. VITAMIN D3 [Concomitant]
     Active Substance: CHOLECALCIFEROL
  3. O^KEEFFE^S HEALTH FOOT CREAM [Concomitant]
  4. O^KEEFEE WORKING HANDS CREAM [Concomitant]
  5. TRIPLE ANTIBIOTIC OINTMENT [Concomitant]
  6. ANTIFUNGAL ECREME [Concomitant]
  7. GOLD BOND SKIN HEALING LOTION [Concomitant]
  8. THE ITCH ERASER ANTIHISTAMINE [Concomitant]
  9. ALOE BARBADENSIS GEL [Concomitant]

REACTIONS (13)
  - Application site pruritus [None]
  - Application site irritation [None]
  - Loss of consciousness [None]
  - Fall [None]
  - Back injury [None]
  - Application site rash [None]
  - Application site pain [None]
  - Dizziness [None]
  - Tremor [None]
  - Limb injury [None]
  - Skin lesion [None]
  - Skin burning sensation [None]
  - Seizure [None]

NARRATIVE: CASE EVENT DATE: 20230411
